FAERS Safety Report 24803267 (Version 1)
Quarter: 2025Q1

REPORT INFORMATION
  Report Type: Spontaneous
  Country: US (occurrence: US)
  Receive Date: 20250103
  Receipt Date: 20250103
  Transmission Date: 20250409
  Serious: No
  Sender: NOVARTIS
  Company Number: US-002147023-NVSC2025US000633

PATIENT
  Sex: Male

DRUGS (3)
  1. PLUVICTO [Suspect]
     Active Substance: LUTETIUM LU-177 VIPIVOTIDE TETRAXETAN
     Indication: Product used for unknown indication
     Route: 065
  2. LUPRON [Concomitant]
     Active Substance: LEUPROLIDE ACETATE
     Indication: Prostate cancer
     Route: 065
  3. AVODART [Concomitant]
     Active Substance: DUTASTERIDE
     Indication: Prostate cancer
     Route: 065

REACTIONS (1)
  - Psoriasis [Unknown]
